FAERS Safety Report 7662178-6 (Version None)
Quarter: 2011Q3

REPORT INFORMATION
  Report Type: 
  Country: None (occurrence: None)
  Receive Date: 20110805
  Receipt Date: 20101201
  Transmission Date: 20111222
  Serious: No
  Sender: FDA-Public Use
  Company Number: US-ABBOTT-10P-163-0689583-00

PATIENT
  Age: 69 Year
  Sex: Female
  Weight: 52.21 kg

DRUGS (4)
  1. NIASPAN [Suspect]
     Indication: BLOOD TRIGLYCERIDES INCREASED
     Route: 048
     Dates: start: 19970101
  2. HYDROCHLOROTHIAZIDE [Suspect]
     Indication: HYPERTENSION
     Route: 048
  3. NIASPAN [Suspect]
     Indication: BLOOD CHOLESTEROL INCREASED
  4. AMLODIPINE BESYLATE [Suspect]
     Indication: HYPERTENSION
     Route: 048

REACTIONS (4)
  - HYPERSENSITIVITY [None]
  - RASH [None]
  - PRURITUS [None]
  - TRANSIENT ACANTHOLYTIC DERMATOSIS [None]
